FAERS Safety Report 12866846 (Version 2)
Quarter: 2017Q4

REPORT INFORMATION
  Report Type: Report from Study
  Country: US (occurrence: US)
  Receive Date: 20161020
  Receipt Date: 20171025
  Transmission Date: 20180320
  Serious: Yes (Other)
  Sender: FDA-Public Use
  Company Number: US-AMGEN-USASL2016127226

PATIENT
  Age: 83 Year
  Sex: Female
  Weight: 68.27 kg

DRUGS (1)
  1. REPATHA [Suspect]
     Active Substance: EVOLOCUMAB
     Indication: BLOOD CHOLESTEROL INCREASED
     Dosage: 140 MG, Q2WK
     Route: 065
     Dates: start: 20160907

REACTIONS (5)
  - Arthralgia [Not Recovered/Not Resolved]
  - Influenza like illness [Recovered/Resolved]
  - Drug hypersensitivity [Unknown]
  - Pain in extremity [Not Recovered/Not Resolved]
  - Pain [Unknown]

NARRATIVE: CASE EVENT DATE: 2016
